FAERS Safety Report 21535524 (Version 5)
Quarter: 2022Q4

REPORT INFORMATION
  Report Type: Spontaneous
  Country: US (occurrence: US)
  Receive Date: 20221101
  Receipt Date: 20221212
  Transmission Date: 20230112
  Serious: Yes (Death, Hospitalization, Other)
  Sender: FDA-Public Use
  Company Number: US-Calliditas-2022CAL00459

PATIENT
  Age: 82 Year
  Sex: Male

DRUGS (19)
  1. TARPEYO [Suspect]
     Active Substance: BUDESONIDE
     Indication: IgA nephropathy
     Dosage: 16 MG (4 MG CAPSULES) ONCE DAILY
     Route: 048
     Dates: start: 20220601
  2. GEMFIBROZIL [Concomitant]
     Active Substance: GEMFIBROZIL
  3. LEVOTHYROXINE [Concomitant]
     Active Substance: LEVOTHYROXINE
  4. SEVELAMER [Concomitant]
     Active Substance: SEVELAMER
     Dosage: TIME INTERVAL:
  5. GABAPENTIN [Concomitant]
     Active Substance: GABAPENTIN
  6. TORSEMIDE [Concomitant]
     Active Substance: TORSEMIDE
  7. CARVEDILOL [Concomitant]
     Active Substance: CARVEDILOL
  8. BACTRIM [Concomitant]
     Active Substance: SULFAMETHOXAZOLE\TRIMETHOPRIM
     Dosage: TIME INTERVAL:
  9. FLOMAX [Concomitant]
     Active Substance: TAMSULOSIN HYDROCHLORIDE
  10. ELIQUIS [Concomitant]
     Active Substance: APIXABAN
  11. LIPITOR [Concomitant]
     Active Substance: ATORVASTATIN CALCIUM
  12. IRON [Concomitant]
     Active Substance: IRON
     Dosage: TIME INTERVAL:
  13. COENZYME Q10 [Concomitant]
     Active Substance: DIETARY SUPPLEMENT\UBIDECARENONE
  14. VITAMINS [Concomitant]
     Active Substance: VITAMINS
  15. MAGNESIUM OXIDE [Concomitant]
     Active Substance: MAGNESIUM OXIDE
  16. ZINCUM [ZINC] [Concomitant]
  17. VITAMIN C [Concomitant]
     Active Substance: ASCORBIC ACID
  18. CLAVULANATE POTASSIUM [Concomitant]
     Active Substance: CLAVULANATE POTASSIUM
  19. LOSARTAN [Concomitant]
     Active Substance: LOSARTAN

REACTIONS (3)
  - Cardiac failure congestive [Recovering/Resolving]
  - Renal impairment [Not Recovered/Not Resolved]
  - COVID-19 [Fatal]

NARRATIVE: CASE EVENT DATE: 20221001
